FAERS Safety Report 16867898 (Version 1)
Quarter: 2019Q3

REPORT INFORMATION
  Report Type: Spontaneous
  Country: US (occurrence: US)
  Receive Date: 20190806
  Receipt Date: 20190806
  Transmission Date: 20191007
  Serious: No
  Sender: FDA-Public Use
  Company Number: None

PATIENT
  Age: 48 Year

DRUGS (1)
  1. AUBAGIO [Suspect]
     Active Substance: TERIFLUNOMIDE
     Route: 048
     Dates: start: 201808

REACTIONS (4)
  - Therapy cessation [None]
  - Abdominal discomfort [None]
  - Headache [None]
  - Insurance issue [None]

NARRATIVE: CASE EVENT DATE: 20190806
